FAERS Safety Report 7028388-6 (Version None)
Quarter: 2010Q4

REPORT INFORMATION
  Report Type: 
  Country: None (occurrence: None)
  Receive Date: 20101005
  Receipt Date: 20100921
  Transmission Date: 20110411
  Serious: Yes (Hospitalization, Other)
  Sender: FDA-Public Use
  Company Number: BR-MEDIMMUNE-MEDI-0011509

PATIENT
  Sex: Male
  Weight: 6.11 kg

DRUGS (4)
  1. SYNAGIS [Suspect]
     Dates: start: 20100619, end: 20100619
  2. SYNAGIS [Suspect]
  3. FUROSEMIDE [Concomitant]
     Dosage: 40 MG, 2 ML EVERY 8 HOURS
     Route: 048
     Dates: start: 20091029
  4. CAPTOPRIL [Concomitant]
     Dosage: 12.5 MG, 6 ML EVERY 8 HOURS
     Route: 048
     Dates: start: 20091029

REACTIONS (5)
  - HYPOPHAGIA [None]
  - MASTOIDITIS [None]
  - MUSCULOSKELETAL STIFFNESS [None]
  - PYREXIA [None]
  - VARICELLA [None]
